FAERS Safety Report 25125023 (Version 1)
Quarter: 2025Q1

REPORT INFORMATION
  Report Type: Spontaneous
  Country: US (occurrence: None)
  Receive Date: 20250326
  Receipt Date: 20250326
  Transmission Date: 20250409
  Serious: No
  Sender: FDA-CTU
  Company Number: None

PATIENT
  Sex: Female

DRUGS (1)
  1. HUMIRA [Suspect]
     Active Substance: ADALIMUMAB
     Indication: Rheumatoid arthritis
     Route: 003
     Dates: start: 20240601

REACTIONS (4)
  - Injection site swelling [None]
  - Peripheral swelling [None]
  - Rash erythematous [None]
  - Contusion [None]
